FAERS Safety Report 4391418-4 (Version None)
Quarter: 2004Q3

REPORT INFORMATION
  Report Type: 
  Country: None (occurrence: None)
  Receive Date: 20040707
  Receipt Date: 20040702
  Transmission Date: 20050211
  Serious: Yes (Death)
  Sender: FDA-Public Use
  Company Number: US-GLAXOSMITHKLINE-A0516933A

PATIENT
  Age: 26 Year
  Sex: Female

DRUGS (2)
  1. LAMICTAL [Suspect]
     Indication: EPILEPSY
     Route: 048
     Dates: start: 20010101, end: 20040306
  2. NO CONCURRENT MEDICATION [Concomitant]

REACTIONS (5)
  - DIZZINESS [None]
  - EAR PAIN [None]
  - EPILEPSY [None]
  - RASH [None]
  - WEIGHT INCREASED [None]
